FAERS Safety Report 5594718-5 (Version None)
Quarter: 2008Q1

REPORT INFORMATION
  Report Type: 
  Country: None (occurrence: None)
  Receive Date: 20080117
  Receipt Date: 20080107
  Transmission Date: 20080703
  Serious: Yes (Death, Hospitalization)
  Sender: FDA-Public Use
  Company Number: GB-GENENTECH-250845

PATIENT
  Sex: Male

DRUGS (1)
  1. RITUXAN [Suspect]
     Indication: ANAEMIA HAEMOLYTIC AUTOIMMUNE
     Dosage: 375 MG/M2, 1/WEEK
     Route: 042
     Dates: start: 20061009, end: 20061030

REACTIONS (3)
  - DIVERTICULAR PERFORATION [None]
  - PULMONARY FIBROSIS [None]
  - RESPIRATORY FAILURE [None]
